FAERS Safety Report 16793767 (Version 4)
Quarter: 2020Q1

REPORT INFORMATION
  Report Type: Report from Study
  Country: None (occurrence: US)
  Receive Date: 20190911
  Receipt Date: 20200116
  Transmission Date: 20200409
  Serious: Yes (Other)
  Sender: FDA-Public Use
  Company Number: US-ABBVIE-18K-163-2356268-00

PATIENT
  Age: 62 Year
  Sex: Female
  Weight: 140.74 kg

DRUGS (15)
  1. ACETAMINOPHEN. [Concomitant]
     Active Substance: ACETAMINOPHEN
     Indication: BACK PAIN
  2. METOPROLOL. [Concomitant]
     Active Substance: METOPROLOL
     Indication: SUPRAVENTRICULAR TACHYCARDIA
  3. LISINOPRIL. [Concomitant]
     Active Substance: LISINOPRIL
     Indication: BLOOD PRESSURE MEASUREMENT
  4. HUMIRA [Suspect]
     Active Substance: ADALIMUMAB
     Route: 058
     Dates: start: 20190826
  5. HUMIRA [Suspect]
     Active Substance: ADALIMUMAB
     Route: 058
     Dates: start: 20190916
  6. HYDROCHLOROTHIAZIDE. [Concomitant]
     Active Substance: HYDROCHLOROTHIAZIDE
     Indication: INCONTINENCE
  7. FISH OIL OMEGA 3 [Concomitant]
     Active Substance: FISH OIL
     Indication: CARDIAC DISORDER
  8. ACETAMINOPHEN. [Concomitant]
     Active Substance: ACETAMINOPHEN
     Indication: INTERVERTEBRAL DISC PROTRUSION
  9. ASPIRIN. [Concomitant]
     Active Substance: ASPIRIN
     Indication: CARDIAC DISORDER
  10. HUMIRA [Suspect]
     Active Substance: ADALIMUMAB
     Route: 058
     Dates: start: 20190930
  11. HYDROCODONE [Concomitant]
     Active Substance: HYDROCODONE
     Indication: INTERVERTEBRAL DISC PROTRUSION
  12. HUMIRA [Suspect]
     Active Substance: ADALIMUMAB
     Indication: PSORIASIS
     Route: 058
  13. OMEPRAZOLE. [Concomitant]
     Active Substance: OMEPRAZOLE
     Indication: GASTROOESOPHAGEAL REFLUX DISEASE
  14. CITALOPRAM [Concomitant]
     Active Substance: CITALOPRAM HYDROBROMIDE
     Indication: DEPRESSION
  15. HYDROCODONE [Concomitant]
     Active Substance: HYDROCODONE
     Indication: BACK PAIN

REACTIONS (9)
  - Surgery [Unknown]
  - Sinusitis [Unknown]
  - Infection [Recovered/Resolved]
  - Psoriasis [Not Recovered/Not Resolved]
  - Headache [Recovered/Resolved]
  - Injection site pain [Not Recovered/Not Resolved]
  - Intervertebral disc protrusion [Not Recovered/Not Resolved]
  - Arthritis [Unknown]
  - Exostosis [Recovered/Resolved]

NARRATIVE: CASE EVENT DATE: 2012
